FAERS Safety Report 7823122-1 (Version None)
Quarter: 2011Q4

REPORT INFORMATION
  Report Type: 
  Country: None (occurrence: None)
  Receive Date: 20111019
  Receipt Date: 20111012
  Transmission Date: 20120403
  Serious: Yes (Other)
  Sender: FDA-Public Use
  Company Number: US-BIOGENIDEC-2011BI036978

PATIENT
  Age: 57 Year
  Sex: Male

DRUGS (4)
  1. AVONEX [Suspect]
     Route: 030
     Dates: start: 20080601, end: 20100107
  2. AVONEX [Suspect]
     Indication: MULTIPLE SCLEROSIS
     Route: 030
     Dates: start: 20100407, end: 20110321
  3. AVONEX [Suspect]
     Route: 030
     Dates: start: 20070201, end: 20080322
  4. AZATHIOPRINE [Concomitant]

REACTIONS (2)
  - INFLUENZA LIKE ILLNESS [None]
  - BLADDER TRANSITIONAL CELL CARCINOMA [None]
